FAERS Safety Report 18974369 (Version 6)
Quarter: 2022Q1

REPORT INFORMATION
  Report Type: Other
  Country: CA (occurrence: None)
  Receive Date: 20210305
  Receipt Date: 20220331
  Transmission Date: 20220424
  Serious: No
  Sender: FDA-Public Use
  Company Number: CA-ROCHE-2508738

PATIENT
  Age: 52 Year
  Sex: Female

DRUGS (4)
  1. OCREVUS [Suspect]
     Active Substance: OCRELIZUMAB
     Indication: Relapsing-remitting multiple sclerosis
     Dosage: 300 MG AT DAY 0 AND 14, THEN 600 MG EVERY 6 MONTH
     Route: 042
     Dates: start: 20190822
  2. PANTOPRAZOLE SODIUM [Concomitant]
     Active Substance: PANTOPRAZOLE SODIUM
  3. IMITREX [Concomitant]
     Active Substance: SUMATRIPTAN SUCCINATE
  4. COVID-19 VACCINE [Concomitant]
     Dosage: 4TH DOSE OF COVID VACCINE ON 26/MAR/2022.

REACTIONS (6)
  - Influenza [Recovering/Resolving]
  - Fatigue [Not Recovered/Not Resolved]
  - Limb discomfort [Recovered/Resolved]
  - Bone pain [Recovered/Resolved]
  - Nasopharyngitis [Recovering/Resolving]
  - Asthenia [Recovering/Resolving]

NARRATIVE: CASE EVENT DATE: 20190901
